FAERS Safety Report 7199112-1 (Version None)
Quarter: 2010Q4

REPORT INFORMATION
  Report Type: 
  Country: None (occurrence: None)
  Receive Date: 20101126
  Receipt Date: 20100809
  Transmission Date: 20110411
  Serious: Yes (Other)
  Sender: FDA-Public Use
  Company Number: CIP10000586

PATIENT
  Age: 57 Year
  Sex: Female
  Weight: 50.9 kg

DRUGS (15)
  1. ACTONEL [Suspect]
     Dosage: 35 MG ONCE WEEKLY, ORAL
     Route: 048
     Dates: start: 20020701, end: 20080401
  2. CALTRATE /00108001/ (CALCIUM CARBONATE) [Concomitant]
  3. ERGOCALCIFEROL [Concomitant]
  4. ULTRAM [Concomitant]
  5. PREVACID [Concomitant]
  6. ZOLOFT [Concomitant]
  7. ACIPHEX [Concomitant]
  8. TYLENOL /00020001/ (PARACETAMOL) [Concomitant]
  9. CARTIA XT [Concomitant]
  10. ZYRTEC [Concomitant]
  11. MULTIVITAMIN /01229101/ (VITAMINS NOS) [Concomitant]
  12. NASONEX [Concomitant]
  13. LOPROX CICLOPIROX OLAMNIE) [Concomitant]
  14. DYAZIDE (TRIAMTERENE, HYDROCHLOROTHIAZIDE) CAPSULE [Concomitant]
  15. SINGULAIR [Concomitant]

REACTIONS (12)
  - BONE CYST [None]
  - DENTAL DISCOMFORT [None]
  - GASTROINTESTINAL DISORDER [None]
  - HYPOAESTHESIA FACIAL [None]
  - JAW DISORDER [None]
  - LOCAL SWELLING [None]
  - NECK PAIN [None]
  - OSTEOLYSIS [None]
  - OSTEOMYELITIS [None]
  - OSTEONECROSIS OF JAW [None]
  - PAIN IN JAW [None]
  - SUBCUTANEOUS ABSCESS [None]
